FAERS Safety Report 5102769-X (Version None)
Quarter: 2006Q3

REPORT INFORMATION
  Report Type: 
  Country: None (occurrence: None)
  Receive Date: 20060907
  Receipt Date: 20060825
  Transmission Date: 20061208
  Serious: Yes (Hospitalization, Other)
  Sender: FDA-Public Use
  Company Number: 2006074301

PATIENT
  Age: 47 Year
  Sex: Female
  Weight: 45.8133 kg

DRUGS (12)
  1. CORTEF [Suspect]
     Indication: ADDISON'S DISEASE
     Dosage: SEE IMAGE
     Route: 048
     Dates: end: 20060615
  2. CORTEF [Suspect]
     Indication: ADDISON'S DISEASE
     Dosage: SEE IMAGE
     Route: 048
     Dates: start: 20051001, end: 20060701
  3. CORTEF [Suspect]
     Indication: ADDISON'S DISEASE
     Dosage: SEE IMAGE
     Route: 048
     Dates: start: 20051001
  4. PROVERA [Suspect]
     Indication: HORMONE REPLACEMENT THERAPY
     Dosage: 2.5 MG (2.5 MG,1 IN 1 D),ORAL
     Route: 048
     Dates: start: 20040101, end: 20051101
  5. PREDNISONE TAB [Suspect]
     Indication: ADDISON'S DISEASE
     Dosage: (5 MG,2 IN 1 D)
     Dates: start: 20060701
  6. CORTISONE ACETATE [Suspect]
     Indication: ADDISON'S DISEASE
     Dosage: 200 MG (100 MG,2 IN 1 D)
  7. PREMARIN [Suspect]
     Indication: HORMONE REPLACEMENT THERAPY
     Dosage: 0.3 MG (0.3 MG,1 IN 1 D)
     Dates: start: 20040101
  8. LEVOTHYROXINE SODIUM [Concomitant]
  9. FLORINEF [Concomitant]
  10. LEVOTHYROXINE SODIUM [Concomitant]
  11. THYROID TAB [Concomitant]
  12. RADIOACTIVE IODINE SOLUTION (SODIUM IODIDE (131 I)) [Concomitant]

REACTIONS (24)
  - BLOOD PRESSURE INCREASED [None]
  - BLOOD PRESSURE ORTHOSTATIC DECREASED [None]
  - BLOOD SODIUM DECREASED [None]
  - CARDIOVASCULAR DISORDER [None]
  - CHEST DISCOMFORT [None]
  - CHEST PAIN [None]
  - CONDITION AGGRAVATED [None]
  - DEHYDRATION [None]
  - DRUG INTERACTION [None]
  - DRUG INTOLERANCE [None]
  - DYSPNOEA [None]
  - FLUID RETENTION [None]
  - HAEMORRHAGE [None]
  - HEART RATE INCREASED [None]
  - HYPERHIDROSIS [None]
  - HYPERSENSITIVITY [None]
  - MYALGIA [None]
  - OVERDOSE [None]
  - PERIPHERAL COLDNESS [None]
  - POLYURIA [None]
  - PREMATURE MENOPAUSE [None]
  - URINE ANALYSIS [None]
  - URINE ANALYSIS ABNORMAL [None]
  - WEIGHT DECREASED [None]
